FAERS Safety Report 8572047-5 (Version None)
Quarter: 2012Q3

REPORT INFORMATION
  Report Type: 
  Country: None (occurrence: None)
  Receive Date: 20120806
  Receipt Date: 20120801
  Transmission Date: 20120928
  Serious: Yes (Hospitalization)
  Sender: FDA-Public Use
  Company Number: FR-AMGEN-FRACT2012044036

PATIENT
  Age: 55 Year
  Sex: Female

DRUGS (6)
  1. DOMPERIDONE [Concomitant]
     Indication: NAUSEA
  2. NEXIUM [Concomitant]
  3. FLUOROURACIL [Concomitant]
     Indication: ANAL CANCER
  4. PANITUMUMAB [Suspect]
     Indication: ANAL CANCER
  5. MITOMYCIN [Concomitant]
     Indication: ANAL CANCER
  6. ACETAMINOPHEN AND TRAMADOL HCL [Concomitant]

REACTIONS (3)
  - FEBRILE NEUTROPENIA [None]
  - PYREXIA [None]
  - DEHYDRATION [None]
